FAERS Safety Report 10195666 (Version 1)
Quarter: 2014Q2

REPORT INFORMATION
  Report Type: Spontaneous
  Country: US (occurrence: US)
  Receive Date: 20140527
  Receipt Date: 20140527
  Transmission Date: 20141212
  Serious: No
  Sender: FDA-Public Use
  Company Number: US-009507513-1405USA010375

PATIENT
  Sex: Female

DRUGS (2)
  1. PROVENTIL [Suspect]
     Indication: SEASONAL ALLERGY
     Dosage: PROVENTIL INHR EA 90MCG 1 STANDARD DOSE OF 6.7, ONE TO TWO PUFFS EVERY FOUR TO S1X HOURS AS NEEDED
     Route: 055
  2. PROVENTIL [Suspect]
     Indication: BRONCHOSPASM

REACTIONS (2)
  - Cough [Unknown]
  - Drug dose omission [Unknown]
